FAERS Safety Report 15349948 (Version 5)
Quarter: 2018Q4

REPORT INFORMATION
  Report Type: Report from Study
  Country: FR (occurrence: FR)
  Receive Date: 20180904
  Receipt Date: 20181109
  Transmission Date: 20190204
  Serious: Yes (Death, Other)
  Sender: FDA-Public Use
  Company Number: PHHY2018FR087410

PATIENT
  Sex: Male
  Weight: 93 kg

DRUGS (19)
  1. BACTRIM [Concomitant]
     Active Substance: SULFAMETHOXAZOLE\TRIMETHOPRIM
     Indication: PRODUCT USED FOR UNKNOWN INDICATION
     Dosage: ONE TABLET ON MONDAY, WEDNESDAY AND FRIDAY
     Route: 065
  2. LYRICA [Concomitant]
     Active Substance: PREGABALIN
     Indication: PRODUCT USED FOR UNKNOWN INDICATION
     Route: 065
  3. DOLIPRANE [Concomitant]
     Active Substance: ACETAMINOPHEN
     Indication: PYREXIA
     Dosage: 1 G EVERY 6 HOURS IN CASE OF PAIN OR FEVER
     Route: 065
  4. TIORFAN [Concomitant]
     Active Substance: RACECADOTRIL
     Indication: DIARRHOEA
     Dosage: 100 MG, TID
     Route: 065
  5. LACTULOSE. [Concomitant]
     Active Substance: LACTULOSE
     Indication: CONSTIPATION
     Dosage: UNK UNK, BID
     Route: 065
  6. ZELITREX [Concomitant]
     Active Substance: VALACYCLOVIR HYDROCHLORIDE
     Indication: PRODUCT USED FOR UNKNOWN INDICATION
     Dosage: 5 TABLETS DAILY FOR 7 DAYS, TAPERED TO 4 TABLETS FOR 7 DAYS AND SUBSEQUENTLY 3 TABLETS DAILY FOR 7 D
     Route: 065
  7. PRIMPERAN [Concomitant]
     Active Substance: METOCLOPRAMIDE HYDROCHLORIDE
     Indication: NAUSEA
     Dosage: 2 DF, TID
     Route: 065
  8. LEDERFOLINE [Concomitant]
     Active Substance: LEUCOVORIN CALCIUM
     Indication: PRODUCT USED FOR UNKNOWN INDICATION
     Dosage: 25 MG, QW
     Route: 065
  9. CONTRAMAL [Concomitant]
     Active Substance: TRAMADOL HYDROCHLORIDE
     Indication: PAIN
     Dosage: 50 MG, Q6H
     Route: 065
  10. PREDNISONE. [Concomitant]
     Active Substance: PREDNISONE
     Indication: CHEMOTHERAPY
     Route: 065
  11. PANTOPRAZOLE [Concomitant]
     Active Substance: PANTOPRAZOLE
     Indication: PRODUCT USED FOR UNKNOWN INDICATION
     Route: 065
  12. PAROEX [Concomitant]
     Active Substance: CHLORHEXIDINE GLUCONATE
     Indication: PRODUCT USED FOR UNKNOWN INDICATION
     Dosage: FOUR OR SIX MOUTHWASHES DAILY WITH MOUTHWASH COMPOSED OF ONE MEASURING CAP OF PAROEX 12% (CHLORHEXID
     Route: 065
  13. OXYGEN. [Concomitant]
     Active Substance: OXYGEN
     Indication: RESPIRATORY DISORDER
     Route: 065
  14. ZOPHREN [Concomitant]
     Active Substance: ONDANSETRON
     Indication: NAUSEA
     Route: 065
  15. ENDOXAN [Concomitant]
     Active Substance: CYCLOPHOSPHAMIDE
     Indication: CHEMOTHERAPY
     Dosage: UNK
     Route: 065
     Dates: start: 20180613
  16. VORICONAZOLE. [Concomitant]
     Active Substance: VORICONAZOLE
     Indication: PRODUCT USED FOR UNKNOWN INDICATION
     Route: 065
  17. CTL019 [Suspect]
     Active Substance: TISAGENLECLEUCEL
     Indication: DIFFUSE LARGE B-CELL LYMPHOMA
     Dosage: 3,5298 X 10^8 CAR+ VIABLE T-CELLS
     Route: 065
     Dates: start: 20180619, end: 20180624
  18. DOLIPRANE [Concomitant]
     Active Substance: ACETAMINOPHEN
     Indication: PAIN
  19. DEXAMETHASONE. [Concomitant]
     Active Substance: DEXAMETHASONE
     Indication: ACUTE LYMPHOCYTIC LEUKAEMIA
     Route: 065

REACTIONS (21)
  - Malignant neoplasm progression [Fatal]
  - Device related infection [Unknown]
  - Sepsis [Unknown]
  - Pyrexia [Unknown]
  - Tumour lysis syndrome [Unknown]
  - Haemophagocytic lymphohistiocytosis [Unknown]
  - Respiratory tract infection [Unknown]
  - Respiratory distress [Fatal]
  - Quadriplegia [Unknown]
  - Cytokine release syndrome [Unknown]
  - Diffuse large B-cell lymphoma recurrent [Fatal]
  - Renal failure [Fatal]
  - Staphylococcal infection [Unknown]
  - Neuropathy peripheral [Unknown]
  - Hypoxia [Unknown]
  - Adrenal insufficiency [Unknown]
  - Cortisol decreased [Unknown]
  - Multiple organ dysfunction syndrome [Fatal]
  - Enterococcal infection [Unknown]
  - Haemodynamic instability [Fatal]
  - Septic shock [Unknown]

NARRATIVE: CASE EVENT DATE: 20180620
